FAERS Safety Report 9259096 (Version 1)
Quarter: 2013Q2

REPORT INFORMATION
  Report Type: Spontaneous
  Country: CA (occurrence: US)
  Receive Date: 20130426
  Receipt Date: 20130426
  Transmission Date: 20140414
  Serious: Yes (Hospitalization)
  Sender: FDA-Public Use
  Company Number: CA-PFIZER INC-2013126729

PATIENT
  Age: 76 Year
  Sex: Male
  Weight: 90.7 kg

DRUGS (3)
  1. CELEBREX [Suspect]
     Dosage: 100 MG (1 CAPSULE), 2X/DAY
  2. CELEBREX [Suspect]
     Dosage: UNK, 1X/DAY
  3. MAALOX [Concomitant]
     Dosage: UNK

REACTIONS (9)
  - Cardiac failure [Recovering/Resolving]
  - Pulmonary oedema [Recovering/Resolving]
  - Atrial fibrillation [Recovering/Resolving]
  - Angina unstable [Recovering/Resolving]
  - Hypertension [Recovering/Resolving]
  - Electrocardiogram abnormal [Recovering/Resolving]
  - Aortic stenosis [Recovering/Resolving]
  - Mitral valve incompetence [Recovering/Resolving]
  - Mitral valve calcification [Recovering/Resolving]
